FAERS Safety Report 6305099-3 (Version None)
Quarter: 2009Q3

REPORT INFORMATION
  Report Type: 
  Country: None (occurrence: None)
  Receive Date: 20090811
  Receipt Date: 20090731
  Transmission Date: 20100115
  Serious: Yes (Death)
  Sender: FDA-Public Use
  Company Number: CH-PFIZER INC-2009248475

PATIENT
  Age: 36 Year

DRUGS (4)
  1. XANAX [Suspect]
     Indication: SLEEP DISORDER
     Dosage: 1 MG, UNK
     Route: 048
     Dates: start: 20090301, end: 20090502
  2. TRAMAL [Suspect]
     Dosage: 100 MG, UNK
     Route: 048
     Dates: start: 20090502, end: 20090502
  3. TRITTICO [Suspect]
     Dosage: 200 MG, 1X/DAY
     Route: 048
     Dates: end: 20090502
  4. DALMADORM ^HOFFMAN^ [Suspect]
     Indication: SLEEP DISORDER
     Dosage: 30 MG, 1X/DAY
     Route: 048
     Dates: end: 20090502

REACTIONS (1)
  - CARDIAC ARREST [None]
